FAERS Safety Report 8613060-9 (Version None)
Quarter: 2012Q3

REPORT INFORMATION
  Report Type: 
  Country: None (occurrence: None)
  Receive Date: 20120822
  Receipt Date: 20120815
  Transmission Date: 20120928
  Serious: No
  Sender: FDA-Public Use
  Company Number: US-PFIZER INC-2012200671

PATIENT
  Sex: Female
  Weight: 60.771 kg

DRUGS (1)
  1. OXYCODONE HCL [Suspect]
     Dosage: 510 UNK, UNK

REACTIONS (2)
  - NAUSEA [None]
  - DRUG HYPERSENSITIVITY [None]
